FAERS Safety Report 16520474 (Version 2)
Quarter: 2019Q3

REPORT INFORMATION
  Report Type: Spontaneous
  Country: US (occurrence: US)
  Receive Date: 20190702
  Receipt Date: 20190710
  Transmission Date: 20191004
  Serious: No
  Sender: FDA-Public Use
  Company Number: US-GALDERMA-US18051761

PATIENT
  Age: 25 Year
  Sex: Female

DRUGS (3)
  1. PROACTIV MD DEEP CLEANSING FACE WASH [Concomitant]
     Active Substance: COSMETICS
     Indication: ACNE
     Route: 061
     Dates: start: 201811, end: 20181203
  2. PROACTIV MD ADAPALENE ACNE TREATMENT [Suspect]
     Active Substance: ADAPALENE
     Indication: ACNE
     Dosage: 0.1%
     Route: 061
     Dates: start: 201811, end: 20181203
  3. PROACTIV MD DAILY OIL CONTROL SPF 30 [Suspect]
     Active Substance: AVOBENZONE\OCTISALATE\OCTOCRYLENE
     Indication: ACNE
     Route: 061
     Dates: start: 201811, end: 20181203

REACTIONS (8)
  - Underdose [Recovered/Resolved]
  - Hypersensitivity [Recovering/Resolving]
  - Chemical burn of skin [Recovering/Resolving]
  - Chapped lips [Recovering/Resolving]
  - Dermatitis [Recovering/Resolving]
  - Inappropriate schedule of product administration [Recovered/Resolved]
  - Skin fissures [Recovering/Resolving]
  - Lip haemorrhage [Recovered/Resolved]

NARRATIVE: CASE EVENT DATE: 201811
